FAERS Safety Report 4470321-5 (Version None)
Quarter: 2004Q3

REPORT INFORMATION
  Report Type: 
  Country: None (occurrence: None)
  Receive Date: 20040910
  Receipt Date: 20040621
  Transmission Date: 20050211
  Serious: No
  Sender: FDA-Public Use
  Company Number: 2004-00108

PATIENT
  Age: 72 Year
  Sex: Male
  Weight: 89.3 kg

DRUGS (6)
  1. VELCADE [Suspect]
     Indication: MULTIPLE MYELOMA
     Dosage: 2.60 MG, IV BOLUS
     Route: 040
     Dates: start: 20040601
  2. ACTOS [Suspect]
     Indication: DIABETES MELLITUS
     Dosage: ORAL
     Route: 048
     Dates: start: 20020101
  3. GLYBURIDE [Suspect]
     Indication: DIABETES MELLITUS
     Dosage: ORAL
     Route: 048
     Dates: start: 20030101
  4. ANTIHYPERTENSIVES [Concomitant]
  5. ASTHMA MEDICATIONS (EPHEDRINE SULFATE, TOLU BALSAM SYRUP, CHLOROFORM W [Concomitant]
  6. THYROID SUPPLEMENT [Concomitant]

REACTIONS (5)
  - HYPERHIDROSIS [None]
  - HYPOGLYCAEMIA [None]
  - HYPOTHYROIDISM [None]
  - PERSONALITY DISORDER [None]
  - VISION BLURRED [None]
